FAERS Safety Report 5482627-1 (Version None)
Quarter: 2007Q4

REPORT INFORMATION
  Report Type: 
  Country: None (occurrence: None)
  Receive Date: 20071011
  Receipt Date: 20070824
  Transmission Date: 20080405
  Serious: No
  Sender: FDA-Public Use
  Company Number: A0676141A

PATIENT
  Age: 66 Year
  Sex: Female

DRUGS (3)
  1. TYKERB [Suspect]
     Indication: BREAST CANCER
     Dosage: 500MG FIVE TIMES PER DAY
     Route: 048
  2. XELODA [Suspect]
     Indication: BREAST CANCER
     Route: 065
  3. ONDANSETRON HCL [Concomitant]

REACTIONS (10)
  - BACK PAIN [None]
  - CONSTIPATION [None]
  - CONTUSION [None]
  - DIARRHOEA [None]
  - FATIGUE [None]
  - GASTROOESOPHAGEAL REFLUX DISEASE [None]
  - ILL-DEFINED DISORDER [None]
  - INSOMNIA [None]
  - NAUSEA [None]
  - SKIN CHAPPED [None]
